FAERS Safety Report 6175507-X (Version None)
Quarter: 2009Q2

REPORT INFORMATION
  Report Type: 
  Country: None (occurrence: None)
  Receive Date: 20090429
  Receipt Date: 20090414
  Transmission Date: 20091009
  Serious: Yes (Hospitalization)
  Sender: FDA-Public Use
  Company Number: GXKR2009GB04635

PATIENT
  Age: 48 Year

DRUGS (13)
  1. RAMIPRIL [Suspect]
  2. ACETYLSALICYLIC ACID SRT [Suspect]
  3. DIDANOSINE [Suspect]
  4. EFAVIRENZ [Suspect]
  5. KALETRA [Suspect]
  6. LAMIVUDINE [Suspect]
  7. NELFINAVIR (NELFINAVIR) [Suspect]
  8. STAVUDINE [Suspect]
  9. TENOFOVIR DISOPROXIL FUMARATE [Suspect]
  10. ZIDOVUDINE [Suspect]
  11. ATORVASTATIN CALCIUM [Concomitant]
  12. OMEGA-3 ACID ETHYL ESTERS (OMEGA-3 ACID ETHYL ESTERS) [Concomitant]
  13. PRAVASTATIN [Concomitant]

REACTIONS (3)
  - DRUG RESISTANCE [None]
  - MYOCARDIAL INFARCTION [None]
  - VIROLOGIC FAILURE [None]
